FAERS Safety Report 4352717-5 (Version None)
Quarter: 2004Q2

REPORT INFORMATION
  Report Type: 
  Country: None (occurrence: None)
  Receive Date: 20040504
  Receipt Date: 20040427
  Transmission Date: 20050107
  Serious: Yes (Hospitalization)
  Sender: FDA-Public Use
  Company Number: 36137

PATIENT
  Age: 58 Year
  Sex: Female
  Weight: 63.2 kg

DRUGS (3)
  1. TOPOTECAN [Suspect]
     Indication: NON-SMALL CELL LUNG CANCER
     Dosage: 2MGM2 CYCLIC
     Route: 042
     Dates: start: 20040409, end: 20040416
  2. VINORELBINE TARTRATE [Suspect]
     Indication: NON-SMALL CELL LUNG CANCER
     Dosage: 25MGM2 CYCLIC
     Route: 042
     Dates: start: 20040409, end: 20040416
  3. CARDIZEM CD [Concomitant]
     Indication: HYPERTENSION
     Dosage: 180MG PER DAY
     Dates: start: 19990101

REACTIONS (5)
  - CHEST PAIN [None]
  - DYSPNOEA [None]
  - HYPOXIA [None]
  - PNEUMONITIS [None]
  - RESPIRATORY DISTRESS [None]
